FAERS Safety Report 9725013 (Version 2)
Quarter: 2013Q4

REPORT INFORMATION
  Report Type: Report from Study
  Country: UY (occurrence: UY)
  Receive Date: 20131203
  Receipt Date: 20131203
  Transmission Date: 20140711
  Serious: Yes (Hospitalization)
  Sender: FDA-Public Use
  Company Number: UY-ROCHE-1294183

PATIENT
  Sex: Male

DRUGS (1)
  1. XELODA [Suspect]
     Indication: COLON CANCER
     Route: 048
     Dates: start: 201309

REACTIONS (5)
  - Fall [Unknown]
  - Dry skin [Unknown]
  - Dry skin [Unknown]
  - Skin injury [Unknown]
  - Skin injury [Unknown]
